FAERS Safety Report 9503063 (Version 2)
Quarter: 2013Q4

REPORT INFORMATION
  Report Type: Spontaneous
  Country: US (occurrence: US)
  Receive Date: 20130906
  Receipt Date: 20131014
  Transmission Date: 20140711
  Serious: Yes (Other)
  Sender: FDA-Public Use
  Company Number: US-PFIZER INC-2013256904

PATIENT
  Age: 54 Year
  Sex: Female
  Weight: 48.5 kg

DRUGS (1)
  1. ADVIL [Suspect]
     Indication: ARTHRALGIA
     Dosage: 200 MG, 3X/DAY
     Dates: start: 2011, end: 20130903

REACTIONS (2)
  - Dermatitis herpetiformis [Not Recovered/Not Resolved]
  - Blister [Not Recovered/Not Resolved]
